FAERS Safety Report 24852538 (Version 1)
Quarter: 2025Q1

REPORT INFORMATION
  Report Type: Spontaneous
  Country: CN (occurrence: CN)
  Receive Date: 20250116
  Receipt Date: 20250116
  Transmission Date: 20250409
  Serious: Yes (Life-Threatening, Hospitalization)
  Sender: ELI LILLY AND COMPANY
  Company Number: CN-MLMSERVICE-20250106-PI331193-00165-1

PATIENT
  Age: 50 Year
  Sex: Female

DRUGS (2)
  1. GEMCITABINE HYDROCHLORIDE [Suspect]
     Active Substance: GEMCITABINE HYDROCHLORIDE
     Indication: Pancreatic carcinoma metastatic
     Route: 065
     Dates: start: 20190726
  2. PACLITAXEL [Suspect]
     Active Substance: PACLITAXEL
     Indication: Pancreatic carcinoma metastatic
     Route: 065
     Dates: start: 20190726

REACTIONS (12)
  - Liver abscess [Unknown]
  - Pulmonary embolism [Unknown]
  - Cerebral infarction [Unknown]
  - Cerebral artery embolism [Unknown]
  - Anaemia [Unknown]
  - Thrombocytopenia [Unknown]
  - Escherichia infection [Unknown]
  - Pneumonia klebsiella [Unknown]
  - Enterococcal infection [Unknown]
  - Candida infection [Unknown]
  - Haemorrhage [Unknown]
  - Leukopenia [Unknown]

NARRATIVE: CASE EVENT DATE: 20190801
